APPROVED DRUG PRODUCT: ALTACE
Active Ingredient: RAMIPRIL
Strength: 5MG
Dosage Form/Route: CAPSULE;ORAL
Application: N019901 | Product #003
Applicant: KING PHARMACEUTICALS LLC
Approved: Jan 28, 1991 | RLD: Yes | RS: No | Type: DISCN